FAERS Safety Report 13974554 (Version 1)
Quarter: 2017Q3

REPORT INFORMATION
  Report Type: Spontaneous
  Country: GB (occurrence: GB)
  Receive Date: 20170915
  Receipt Date: 20170915
  Transmission Date: 20171128
  Serious: Yes (Other)
  Sender: FDA-Public Use
  Company Number: GB-TEVA-804834ACC

PATIENT
  Age: 73 Year
  Sex: Male
  Weight: 85 kg

DRUGS (10)
  1. FEXOFENADINE [Concomitant]
     Active Substance: FEXOFENADINE\FEXOFENADINE HYDROCHLORIDE
     Dosage: 1 DOSAGE FORMS DAILY;
     Dates: start: 20140520
  2. APIXABAN [Concomitant]
     Active Substance: APIXABAN
     Dosage: 2 DOSAGE FORMS DAILY;
     Dates: start: 20170809
  3. DIGOXIN. [Concomitant]
     Active Substance: DIGOXIN
     Dosage: 1 DOSAGE FORMS DAILY;
     Dates: start: 20060607
  4. RISPERIDONE. [Concomitant]
     Active Substance: RISPERIDONE
     Dosage: 1 DOSAGE FORMS DAILY;
     Dates: start: 20160729
  5. AZATHIOPRINE. [Concomitant]
     Active Substance: AZATHIOPRINE
     Dosage: 1 DOSAGE FORMS DAILY;
     Dates: start: 20060615
  6. ERYTHROMYCIN. [Concomitant]
     Active Substance: ERYTHROMYCIN
     Dosage: 2 DOSAGE FORMS DAILY;
     Dates: start: 20060613
  7. SPIRONOLACTONE. [Concomitant]
     Active Substance: SPIRONOLACTONE
     Dosage: 1 DOSAGE FORMS DAILY;
     Dates: start: 20120403
  8. LANSOPRAZOLE. [Suspect]
     Active Substance: LANSOPRAZOLE
     Dates: start: 20170809
  9. HUMULIN M3 [Concomitant]
     Active Substance: INSULIN HUMAN
     Dosage: 14 IU (INTERNATIONAL UNIT) DAILY;
     Dates: start: 20060615
  10. THIAMINE. [Concomitant]
     Active Substance: THIAMINE
     Dosage: 3 DOSAGE FORMS DAILY;
     Dates: start: 20120403

REACTIONS (5)
  - Mouth ulceration [Recovered/Resolved]
  - Abdominal distension [Unknown]
  - Nausea [Unknown]
  - Arthralgia [Unknown]
  - Fatigue [Unknown]

NARRATIVE: CASE EVENT DATE: 20170823
